FAERS Safety Report 20502461 (Version 1)
Quarter: 2022Q1

REPORT INFORMATION
  Report Type: Spontaneous
  Country: US (occurrence: None)
  Receive Date: 20220222
  Receipt Date: 20220222
  Transmission Date: 20220423
  Serious: Yes (Other)
  Sender: FDA-Public Use
  Company Number: 2022A079650

PATIENT
  Age: 67 Year
  Sex: Female
  Weight: 85.3 kg

DRUGS (1)
  1. EVUSHELD [Suspect]
     Active Substance: CILGAVIMAB\TIXAGEVIMAB
     Indication: COVID-19
     Dosage: 150MG/1.5MLS IM ONCE/SINGLE ADMINISTRATION
     Route: 030
     Dates: start: 20220211

REACTIONS (4)
  - Chills [Unknown]
  - Tongue dry [Unknown]
  - Somnolence [Unknown]
  - Limb discomfort [Unknown]

NARRATIVE: CASE EVENT DATE: 20220211
